FAERS Safety Report 7183556-8 (Version None)
Quarter: 2010Q4

REPORT INFORMATION
  Report Type: 
  Country: None (occurrence: None)
  Receive Date: 20101222
  Receipt Date: 20101214
  Transmission Date: 20110411
  Serious: Yes (Hospitalization, Other)
  Sender: FDA-Public Use
  Company Number: FI-SANOFI-AVENTIS-2010SA075313

PATIENT
  Age: 64 Year
  Sex: Female

DRUGS (8)
  1. MULTAQ [Suspect]
     Route: 048
     Dates: start: 20100324, end: 20101125
  2. WARFARIN SODIUM [Concomitant]
     Route: 048
  3. TRACLEER [Concomitant]
     Route: 048
     Dates: start: 20090201
  4. FURESIS [Concomitant]
     Route: 048
  5. EMGESAN [Concomitant]
     Route: 048
  6. ESCITALOPRAM [Concomitant]
     Route: 048
  7. KALEORID [Concomitant]
     Route: 048
  8. SPIRESIS [Concomitant]
     Route: 048

REACTIONS (3)
  - EXTRASYSTOLES [None]
  - VENTRICULAR EXTRASYSTOLES [None]
  - VENTRICULAR TACHYCARDIA [None]
